FAERS Safety Report 19723528 (Version 2)
Quarter: 2021Q4

REPORT INFORMATION
  Report Type: Spontaneous
  Country: US (occurrence: US)
  Receive Date: 20210820
  Receipt Date: 20211018
  Transmission Date: 20220304
  Serious: Yes (Life-Threatening, Hospitalization)
  Sender: FDA-Public Use
  Company Number: US-DRREDDYS-SPO/USA/21/0139100

PATIENT
  Age: 74 Year
  Sex: Female

DRUGS (3)
  1. DEXAMETHASONE SODIUM PHOSPHATE [Suspect]
     Active Substance: DEXAMETHASONE SODIUM PHOSPHATE
     Indication: Brain oedema
  2. AMPHOTERICIN B [Suspect]
     Active Substance: AMPHOTERICIN B
     Indication: Mucormycosis
  3. AMPHOTERICIN B [Suspect]
     Active Substance: AMPHOTERICIN B
     Indication: Mucormycosis

REACTIONS (13)
  - Condition aggravated [Recovered/Resolved]
  - Mental disorder [Recovered/Resolved]
  - Visual impairment [Recovered/Resolved]
  - Ophthalmoplegia [Recovered/Resolved]
  - Hyperglycaemic hyperosmolar nonketotic syndrome [Recovered/Resolved]
  - Stenotrophomonas infection [Recovered/Resolved]
  - Herpes virus infection [Recovered/Resolved]
  - Staphylococcal infection [Recovered/Resolved]
  - Mucormycosis [Recovered/Resolved]
  - Mucormycosis [Recovered/Resolved]
  - Septic shock [Recovered/Resolved]
  - Exophthalmos [Recovered/Resolved]
  - Hypokalaemia [Recovered/Resolved]
